FAERS Safety Report 13121352 (Version 6)
Quarter: 2021Q1

REPORT INFORMATION
  Report Type: Spontaneous
  Country: US (occurrence: US)
  Receive Date: 20170117
  Receipt Date: 20210107
  Transmission Date: 20210419
  Serious: Yes (Hospitalization, Other)
  Sender: FDA-Public Use
  Company Number: US-SA-2017SA004836

PATIENT

DRUGS (2)
  1. FABRAZYME [Suspect]
     Active Substance: AGALSIDASE BETA
     Indication: FABRY^S DISEASE
     Dosage: 110 MG,QOW
     Route: 041
     Dates: start: 20160919, end: 20181213
  2. FABRAZYME [Suspect]
     Active Substance: AGALSIDASE BETA
     Dosage: 110 MG, QOW
     Route: 042

REACTIONS (5)
  - Thrombosis [Unknown]
  - Headache [Unknown]
  - Dizziness [Unknown]
  - Product dose omission issue [Unknown]
  - End stage renal disease [Unknown]

NARRATIVE: CASE EVENT DATE: 201609
